FAERS Safety Report 15747128 (Version 2)
Quarter: 2019Q1

REPORT INFORMATION
  Report Type: Spontaneous
  Country: FR (occurrence: FR)
  Receive Date: 20181220
  Receipt Date: 20190117
  Transmission Date: 20190417
  Serious: Yes (Other)
  Sender: FDA-Public Use
  Company Number: FR-009507513-1812FRA007162

PATIENT
  Age: 31 Year
  Sex: Female
  Weight: 39 kg

DRUGS (1)
  1. NEXPLANON [Suspect]
     Active Substance: ETONOGESTREL
     Dosage: 1 DOSAGE FORM, IN RIGHT ARM
     Route: 059
     Dates: start: 20180829, end: 20181129

REACTIONS (4)
  - Chest pain [Unknown]
  - Vascular operation [Unknown]
  - Device embolisation [Recovered/Resolved]
  - Device deployment issue [Recovered/Resolved]

NARRATIVE: CASE EVENT DATE: 2018
